FAERS Safety Report 25898825 (Version 1)
Quarter: 2025Q4

REPORT INFORMATION
  Report Type: Spontaneous
  Country: US (occurrence: US)
  Receive Date: 20251009
  Receipt Date: 20251009
  Transmission Date: 20260117
  Serious: No
  Sender: NUVATION BIO
  Company Number: US-NUVATION BIO INC.-2025NUV000124

PATIENT
  Sex: Female
  Weight: 55.782 kg

DRUGS (2)
  1. IBTROZI [Suspect]
     Active Substance: TALETRECTINIB ADIPATE
     Indication: Lung neoplasm malignant
     Dosage: 600 MILLIGRAM, QD
  2. IBTROZI [Suspect]
     Active Substance: TALETRECTINIB ADIPATE
     Dosage: 400 MILLIGRAM, QD

REACTIONS (1)
  - Transaminases increased [Recovered/Resolved]
